FAERS Safety Report 6565430-0 (Version None)
Quarter: 2010Q1

REPORT INFORMATION
  Report Type: 
  Country: None (occurrence: None)
  Receive Date: 20100201
  Receipt Date: 20100120
  Transmission Date: 20100710
  Serious: Yes (Other)
  Sender: FDA-Public Use
  Company Number: PHHY2010JP03850

PATIENT
  Age: 55 Year
  Sex: Male

DRUGS (8)
  1. CYCLOSPORINE [Suspect]
     Indication: LIVER TRANSPLANT
  2. TACROLIMUS [Concomitant]
     Indication: LIVER TRANSPLANT
  3. AZATHIOPRINE [Concomitant]
     Indication: LIVER TRANSPLANT
  4. PREDONINE [Concomitant]
     Indication: LIVER TRANSPLANT
  5. MYCOPHENOLATE MOFETIL [Concomitant]
     Indication: LIVER TRANSPLANT
  6. UFT [Concomitant]
  7. NEXAVAR [Concomitant]
  8. ZOMETA [Concomitant]

REACTIONS (3)
  - BLOOD ALKALINE PHOSPHATASE INCREASED [None]
  - HEPATIC CANCER METASTATIC [None]
  - METASTASES TO BONE [None]
